FAERS Safety Report 5932734-1 (Version None)
Quarter: 2008Q4

REPORT INFORMATION
  Report Type: 
  Country: None (occurrence: None)
  Receive Date: 20081027
  Receipt Date: 20081027
  Transmission Date: 20090506
  Serious: Yes (Death)
  Sender: FDA-Public Use
  Company Number: None

PATIENT
  Age: 74 Year
  Sex: Male
  Weight: 83.4 kg

DRUGS (2)
  1. CAPECITABINE 2000/SQ M/DAY, 2 WEEKS ON, 1 WEEK OFF [Suspect]
     Indication: COLON CANCER
     Dosage: P.O. 2000/SQ M/DAY
     Route: 048
  2. LAPATINIB 1250 MG P.O. DAILY [Suspect]
     Indication: COLON CANCER
     Dosage: 1250 MG P.O. DAILY
     Route: 048

REACTIONS (2)
  - MALIGNANT NEOPLASM PROGRESSION [None]
  - METASTASES TO LUNG [None]
